FAERS Safety Report 21324230 (Version 2)
Quarter: 2022Q4

REPORT INFORMATION
  Report Type: Report from Study
  Country: KR (occurrence: KR)
  Receive Date: 20220912
  Receipt Date: 20221201
  Transmission Date: 20230112
  Serious: Yes (Other)
  Sender: FDA-Public Use
  Company Number: KR-TAKEDA-2022TJP073052

PATIENT

DRUGS (9)
  1. NIRAPARIB [Suspect]
     Active Substance: NIRAPARIB
     Indication: Product used for unknown indication
     Dosage: 200 MILLIGRAM, QD
     Route: 048
     Dates: start: 20220531
  2. MIRTAPIN [Concomitant]
     Indication: Sleep disorder
     Dosage: 7.5 MILLIGRAM, QD
     Route: 048
     Dates: start: 20220421
  3. RIVOTRIL [Concomitant]
     Active Substance: CLONAZEPAM
     Indication: Sleep disorder
     Dosage: 0.5 MILLIGRAM, QD
     Route: 048
     Dates: start: 20220324
  4. XANAX [Concomitant]
     Active Substance: ALPRAZOLAM
     Indication: Sleep disorder
     Dosage: 0.25 MILLIGRAM, QD
     Route: 048
     Dates: start: 20210803
  5. TANTUM GARGLE [Concomitant]
     Indication: Oesophageal candidiasis
     Dosage: 200 MILLILITER, TID
     Route: 048
     Dates: start: 20220610, end: 20220613
  6. TANTUM GARGLE [Concomitant]
     Dosage: 300 MILLILITER, TID
     Route: 048
     Dates: start: 20220614, end: 20220701
  7. MAGMIL S [Concomitant]
     Indication: Constipation
     Dosage: 500 MILLIGRAM, TID
     Route: 048
     Dates: start: 20220609, end: 20220711
  8. METOCLOPRAMIDE HYDROCHLORIDE [Concomitant]
     Active Substance: METOCLOPRAMIDE HYDROCHLORIDE
     Indication: Prophylaxis
     Dosage: 5 MILLIGRAM, QD
     Route: 048
     Dates: start: 20220621
  9. MEGACE F [Concomitant]
     Indication: Hypophagia
     Dosage: 5 MILLILITER, QD
     Route: 048
     Dates: start: 20220621, end: 20220627

REACTIONS (1)
  - Oesophageal candidiasis [Recovered/Resolved]

NARRATIVE: CASE EVENT DATE: 20220610
